FAERS Safety Report 8803691 (Version 2)
Quarter: 2013Q1

REPORT INFORMATION
  Report Type: Spontaneous
  Country: US (occurrence: US)
  Receive Date: 20120924
  Receipt Date: 20130104
  Transmission Date: 20140127
  Serious: No
  Sender: FDA-Public Use
  Company Number: US-009507513-1209USA003860

PATIENT
  Sex: Male

DRUGS (3)
  1. AZASITE [Suspect]
     Indication: BLEPHARITIS
     Dosage: 1 DROP , QD
     Dates: start: 20120901, end: 20121114
  2. AZASITE [Suspect]
     Indication: MEIBOMIANITIS
  3. ARTIFICIAL TEARS (POLYVINYL ALCOHOL) [Concomitant]
     Indication: DRY EYE
     Dosage: UNK

REACTIONS (4)
  - Eye irritation [Recovered/Resolved]
  - Incorrect route of drug administration [Unknown]
  - Inappropriate schedule of drug administration [Unknown]
  - Dry eye [Not Recovered/Not Resolved]
